FAERS Safety Report 4305174-9 (Version None)
Quarter: 2004Q1

REPORT INFORMATION
  Report Type: 
  Country: None (occurrence: None)
  Receive Date: 20040225
  Receipt Date: 20040225
  Transmission Date: 20041129
  Serious: Yes (Life-Threatening)
  Sender: FDA-Public Use
  Company Number: None

PATIENT
  Age: 61 Year
  Sex: Male
  Weight: 70 kg

DRUGS (3)
  1. VORICONAZOLE [Suspect]
     Indication: FEBRILE NEUTROPENIA
     Dosage: 200 MG PO BID
     Route: 048
  2. CEFEPINE [Concomitant]
  3. HEPARIN [Concomitant]

REACTIONS (1)
  - BLOOD BILIRUBIN INCREASED [None]
